FAERS Safety Report 13471218 (Version 1)
Quarter: 2017Q2

REPORT INFORMATION
  Report Type: Spontaneous
  Country: IT (occurrence: IT)
  Receive Date: 20170424
  Receipt Date: 20170424
  Transmission Date: 20170830
  Serious: Yes (Life-Threatening, Hospitalization, Other)
  Sender: FDA-Public Use
  Company Number: IT-ACCORD-050740

PATIENT
  Age: 45 Year
  Sex: Male

DRUGS (3)
  1. CISPLATIN. [Suspect]
     Active Substance: CISPLATIN
     Indication: SEMINOMA
  2. BLEOMYCIN [Suspect]
     Active Substance: BLEOMYCIN SULFATE
     Indication: SEMINOMA
  3. ETOPOSIDE. [Suspect]
     Active Substance: ETOPOSIDE
     Indication: SEMINOMA

REACTIONS (13)
  - Rectal haemorrhage [Unknown]
  - Thrombocytopenia [Unknown]
  - Gastritis erosive [Unknown]
  - Melaena [Unknown]
  - Palmar-plantar erythrodysaesthesia syndrome [Unknown]
  - Intestinal obstruction [Unknown]
  - Anaemia [Unknown]
  - Haematemesis [Unknown]
  - Dysphagia [None]
  - Febrile neutropenia [Unknown]
  - Mucosal inflammation [Unknown]
  - Candida infection [None]
  - Skin toxicity [None]
